FAERS Safety Report 10222298 (Version 2)
Quarter: 2014Q3

REPORT INFORMATION
  Report Type: Report from Study
  Country: US (occurrence: US)
  Receive Date: 20140606
  Receipt Date: 20140805
  Transmission Date: 20150326
  Serious: Yes (Hospitalization)
  Sender: FDA-Public Use
  Company Number: US-PURDUE-USA-2014-0114621

PATIENT
  Age: 51 Year
  Sex: Female

DRUGS (1)
  1. OXYCONTIN [Suspect]
     Active Substance: OXYCODONE HYDROCHLORIDE
     Indication: FIBROMYALGIA
     Dosage: 30 MG, Q8H
     Route: 048
     Dates: start: 20140322, end: 20140422

REACTIONS (3)
  - Abscess neck [Recovered/Resolved]
  - Spinal cord infection [Recovered/Resolved]
  - Bone neoplasm [Unknown]

NARRATIVE: CASE EVENT DATE: 201402
